FAERS Safety Report 4797417-2 (Version None)
Quarter: 2005Q4

REPORT INFORMATION
  Report Type: 
  Country: None (occurrence: None)
  Receive Date: 20051013
  Receipt Date: 20050426
  Transmission Date: 20060501
  Serious: Yes (Other)
  Sender: FDA-Public Use
  Company Number: AU-BRISTOL-MYERS SQUIBB COMPANY-12957635

PATIENT
  Sex: Male

DRUGS (2)
  1. EFAVIRENZ [Suspect]
     Route: 048
  2. COMBIVIR [Concomitant]

REACTIONS (2)
  - ADENOCARCINOMA [None]
  - BLOOD CORTISOL INCREASED [None]
